FAERS Safety Report 10743872 (Version 3)
Quarter: 2015Q2

REPORT INFORMATION
  Report Type: Spontaneous
  Country: US (occurrence: US)
  Receive Date: 20150128
  Receipt Date: 20150601
  Transmission Date: 20150821
  Serious: Yes (Other)
  Sender: FDA-Public Use
  Company Number: US-AMGEN-USASL2015006329

PATIENT
  Age: 59 Year
  Sex: Female

DRUGS (2)
  1. ENBREL [Suspect]
     Active Substance: ETANERCEPT
     Indication: PSORIASIS
     Dosage: 50 MG, QWK
     Route: 065
     Dates: start: 20130601, end: 201412
  2. OTEZLA [Concomitant]
     Active Substance: APREMILAST
     Dosage: UNK

REACTIONS (8)
  - Oral disorder [Recovered/Resolved]
  - Pneumonia [Not Recovered/Not Resolved]
  - Fear [Not Recovered/Not Resolved]
  - Psoriasis [Recovered/Resolved]
  - Immune system disorder [Unknown]
  - Influenza [Not Recovered/Not Resolved]
  - Injection site irritation [Recovered/Resolved]
  - Bronchitis [Not Recovered/Not Resolved]

NARRATIVE: CASE EVENT DATE: 201306
